FAERS Safety Report 7658809-7 (Version None)
Quarter: 2011Q3

REPORT INFORMATION
  Report Type: 
  Country: None (occurrence: None)
  Receive Date: 20110805
  Receipt Date: 20110726
  Transmission Date: 20111222
  Serious: Yes (Other)
  Sender: FDA-Public Use
  Company Number: CA-JNJFOC-20110800339

PATIENT
  Sex: Male
  Weight: 77 kg

DRUGS (5)
  1. CORTIFOAM [Concomitant]
  2. REMICADE [Suspect]
     Indication: COLITIS ULCERATIVE
     Route: 042
     Dates: start: 20110727
  3. MESALAMINE [Concomitant]
  4. CELEXA [Concomitant]
  5. REMICADE [Suspect]
     Dosage: TOTAL OF 25 INFUSIONS
     Route: 042
     Dates: start: 20000101

REACTIONS (1)
  - CATARACT [None]
